FAERS Safety Report 25966638 (Version 2)
Quarter: 2025Q4

REPORT INFORMATION
  Report Type: Report from Study
  Country: US (occurrence: US)
  Receive Date: 20251028
  Receipt Date: 20251127
  Transmission Date: 20260117
  Serious: No
  Sender: DECIPHERA PHARMACEUTICALS
  Company Number: US-DECIPHERA PHARMACEUTICALS LLC-2025US001252

PATIENT
  Age: 69 Year
  Sex: Female
  Weight: 71.088 kg

DRUGS (1)
  1. QINLOCK [Suspect]
     Active Substance: RIPRETINIB
     Indication: Gastrointestinal stromal tumour
     Dosage: 150 MILLIGRAM, QD
     Dates: start: 20250307, end: 20251021

REACTIONS (2)
  - Blood magnesium abnormal [Unknown]
  - Limb discomfort [Unknown]

NARRATIVE: CASE EVENT DATE: 20250101
